FAERS Safety Report 10187243 (Version 2)
Quarter: 2014Q2

REPORT INFORMATION
  Report Type: Report from Study
  Country: DE (occurrence: DE)
  Receive Date: 20140522
  Receipt Date: 20140530
  Transmission Date: 20141212
  Serious: Yes (Other)
  Sender: FDA-Public Use
  Company Number: PHHY2014DE060761

PATIENT
  Sex: Male
  Weight: 79 kg

DRUGS (12)
  1. AMN107 [Suspect]
     Indication: CHRONIC MYELOID LEUKAEMIA
     Dosage: 600 MG, QD
     Route: 048
     Dates: start: 20120530
  2. AMN107 [Suspect]
     Dosage: 600 MG, QD
     Route: 048
     Dates: start: 20120927
  3. AMN107 [Suspect]
     Dosage: 300 MG, QD
     Route: 048
     Dates: start: 20121025
  4. AMN107 [Suspect]
     Dosage: 300 MG, QD
     Route: 048
     Dates: start: 20121206
  5. AMN107 [Suspect]
     Dosage: 300 MG, QD
     Route: 048
     Dates: start: 20130411
  6. AMN107 [Suspect]
     Dosage: 150 MG, QD
     Route: 048
     Dates: start: 20130912
  7. AMN107 [Suspect]
     Dosage: 300 MG, QD
     Route: 048
     Dates: start: 20130718
  8. METOPROLOL [Concomitant]
     Indication: HYPERTENSION
     Dosage: 47.5 MG, QD
     Dates: start: 19900101
  9. ALLOPURINOL [Concomitant]
     Dates: start: 19900101
  10. INSIDON [Concomitant]
     Indication: DEPRESSION
     Dosage: 50 MG, BID
     Dates: start: 19900101
  11. DOXEPIN [Concomitant]
     Indication: DEPRESSION
     Dosage: 25 MG, QD
     Dates: start: 19900101
  12. PAROXAT [Concomitant]
     Indication: DEPRESSION
     Dosage: 20 MG, QD
     Dates: start: 19900101

REACTIONS (2)
  - Chronic myeloid leukaemia [Recovered/Resolved]
  - Malignant neoplasm progression [Recovered/Resolved]
